FAERS Safety Report 9071461 (Version 1)
Quarter: 2013Q1

REPORT INFORMATION
  Report Type: Report from Study
  Country: US (occurrence: US)
  Receive Date: 20130129
  Receipt Date: 20130129
  Transmission Date: 20140127
  Serious: No
  Sender: FDA-Public Use
  Company Number: US-ABBOTT-12P-163-0924637-00

PATIENT
  Age: 37 Year
  Sex: Female

DRUGS (5)
  1. HUMIRA 40 MG/ 0.8 ML PRE-FILLED SYRINGE [Suspect]
     Indication: PSORIASIS
     Dates: start: 201106
  2. ZANAFLEX [Concomitant]
     Indication: RESTLESS LEGS SYNDROME
  3. ARMOUR THYROID [Concomitant]
     Indication: PRODUCT USED FOR UNKNOWN INDICATION
     Dosage: 2 GRAMS/120MG
  4. LORTAB [Concomitant]
     Indication: PAIN
     Dosage: 5/500MG 1 TAB Q4-6H PRN
  5. ONE A DAY MULTIVITAMIN W/IMMUNITY SUPPORT [Concomitant]
     Indication: PRODUCT USED FOR UNKNOWN INDICATION

REACTIONS (2)
  - Antinuclear antibody positive [Not Recovered/Not Resolved]
  - Pain [Not Recovered/Not Resolved]
